FAERS Safety Report 22272704 (Version 8)
Quarter: 2025Q2

REPORT INFORMATION
  Report Type: Report from Study
  Country: CA (occurrence: CA)
  Receive Date: 20230502
  Receipt Date: 20250528
  Transmission Date: 20250716
  Serious: Yes (Other)
  Sender: TAKEDA
  Company Number: CA-TAKEDA-2023TUS029057

PATIENT
  Age: 56 Year
  Sex: Female

DRUGS (10)
  1. VEDOLIZUMAB [Suspect]
     Active Substance: VEDOLIZUMAB
     Indication: Colitis ulcerative
  2. VEDOLIZUMAB [Suspect]
     Active Substance: VEDOLIZUMAB
     Dosage: 300 MILLIGRAM, Q4WEEKS
     Dates: start: 20230616
  3. VEDOLIZUMAB [Suspect]
     Active Substance: VEDOLIZUMAB
     Dosage: 300 MILLIGRAM, Q4WEEKS
  4. VEDOLIZUMAB [Suspect]
     Active Substance: VEDOLIZUMAB
     Dosage: 300 MILLIGRAM, Q4WEEKS
  5. VEDOLIZUMAB [Suspect]
     Active Substance: VEDOLIZUMAB
     Dosage: 300 MILLIGRAM, Q4WEEKS
  6. VEDOLIZUMAB [Suspect]
     Active Substance: VEDOLIZUMAB
     Dosage: 300 MILLIGRAM, Q4WEEKS
  7. VEDOLIZUMAB [Suspect]
     Active Substance: VEDOLIZUMAB
     Dosage: 300 MILLIGRAM, Q4WEEKS
     Dates: end: 20231201
  8. ACETAMINOPHEN [Suspect]
     Active Substance: ACETAMINOPHEN
     Indication: Abdominal discomfort
  9. Cortiment [Concomitant]
  10. Salofalk [Concomitant]

REACTIONS (15)
  - Haematochezia [Unknown]
  - Colitis ulcerative [Unknown]
  - Rectal haemorrhage [Unknown]
  - Influenza like illness [Unknown]
  - Frequent bowel movements [Unknown]
  - Abdominal discomfort [Unknown]
  - Off label use [Unknown]
  - Therapeutic reaction time decreased [Recovering/Resolving]
  - Vertigo [Recovering/Resolving]
  - Stress at work [Unknown]
  - Dyspnoea [Unknown]
  - Chest discomfort [Unknown]
  - Muscle spasms [Unknown]
  - Flatulence [Unknown]
  - Arthralgia [Unknown]

NARRATIVE: CASE EVENT DATE: 20230616
